FAERS Safety Report 9120130 (Version 1)
Quarter: 2013Q1

REPORT INFORMATION
  Report Type: Spontaneous
  Country: US (occurrence: US)
  Receive Date: 20130226
  Receipt Date: 20130226
  Transmission Date: 20140127
  Serious: No
  Sender: FDA-Public Use
  Company Number: US-JNJFOC-20130207899

PATIENT
  Sex: Male
  Weight: 104.33 kg

DRUGS (4)
  1. DURAGESIC [Suspect]
     Indication: PAIN
     Route: 062
  2. PERCOCET [Concomitant]
     Dosage: 10-325 FOUR TIMES DAILY
     Route: 065
  3. CLARINEX [Concomitant]
     Indication: MULTIPLE ALLERGIES
     Route: 048
  4. PROTONIX [Concomitant]
     Route: 048

REACTIONS (1)
  - Wrong technique in drug usage process [Not Recovered/Not Resolved]
